FAERS Safety Report 4762811-2 (Version None)
Quarter: 2005Q3

REPORT INFORMATION
  Report Type: 
  Country: None (occurrence: None)
  Receive Date: 20050907
  Receipt Date: 20050830
  Transmission Date: 20060218
  Serious: Yes (Other)
  Sender: FDA-Public Use
  Company Number: PHBS2005DE12835

PATIENT
  Age: 18 Year
  Sex: Female

DRUGS (7)
  1. CYCLOSPORINE [Suspect]
     Indication: RENAL TRANSPLANT
  2. SIROLIMUS [Suspect]
     Indication: RENAL TRANSPLANT
     Dosage: 2.4 MG/M2/DAY
  3. MYCOPHENOLATE MOFETIL [Concomitant]
     Dosage: 600 MG/M2/DAY
  4. METHYLPREDNISOLONE [Concomitant]
     Dosage: 4 MG/M2/DAY
  5. ATGAM [Concomitant]
  6. AZATHIOPRINE [Concomitant]
  7. CORTICOSTEROIDS [Concomitant]

REACTIONS (7)
  - BLOOD CREATININE INCREASED [None]
  - DISEASE RECURRENCE [None]
  - GLOMERULONEPHRITIS FOCAL [None]
  - HYPOALBUMINAEMIA [None]
  - NEPHROPATHY TOXIC [None]
  - NEPHROTIC SYNDROME [None]
  - PROTEINURIA [None]
